FAERS Safety Report 9905506 (Version 2)
Quarter: 2014Q2

REPORT INFORMATION
  Report Type: Spontaneous
  Country: US (occurrence: US)
  Receive Date: 20140218
  Receipt Date: 20140410
  Transmission Date: 20141212
  Serious: Yes (Death)
  Sender: FDA-Public Use
  Company Number: US-GLAXOSMITHKLINE-A1060682A

PATIENT
  Age: 77 Year
  Sex: Female

DRUGS (8)
  1. ARIXTRA [Suspect]
     Indication: PULMONARY THROMBOSIS
     Dosage: 7.5MG PER DAY
     Route: 065
     Dates: start: 201310
  2. SYMBICORT [Concomitant]
  3. GABAPENTIN [Concomitant]
  4. PRO-AIR [Concomitant]
  5. SPIRIVA [Concomitant]
  6. OMEPRAZOL [Concomitant]
  7. ARMOUR THYROID [Concomitant]
  8. VITAMINS [Concomitant]

REACTIONS (2)
  - Neoplasm malignant [Fatal]
  - Hospice care [Unknown]
